FAERS Safety Report 26128000 (Version 1)
Quarter: 2025Q4

REPORT INFORMATION
  Report Type: Spontaneous
  Country: US (occurrence: US)
  Receive Date: 20251206
  Receipt Date: 20251206
  Transmission Date: 20260117
  Serious: Yes (Other)
  Sender: AMGEN
  Company Number: US-AMGEN-USASP2025236385

PATIENT
  Age: 22 Year
  Sex: Female

DRUGS (2)
  1. PREDNISONE [Suspect]
     Active Substance: PREDNISONE
     Indication: Chronic recurrent multifocal osteomyelitis
     Dosage: UNK
     Route: 065
  2. LINEZOLID [Concomitant]
     Active Substance: LINEZOLID
     Indication: Chronic recurrent multifocal osteomyelitis
     Dosage: UNK, (HIGH DOSES OF STEROIDS)
     Route: 065

REACTIONS (4)
  - Hypophosphatasia [Unknown]
  - Postural orthostatic tachycardia syndrome [Unknown]
  - Stress fracture [Unknown]
  - Loss of personal independence in daily activities [Unknown]
